FAERS Safety Report 4682462-8 (Version None)
Quarter: 2005Q2

REPORT INFORMATION
  Report Type: 
  Country: None (occurrence: None)
  Receive Date: 20050531
  Receipt Date: 20050315
  Transmission Date: 20051028
  Serious: No
  Sender: FDA-Public Use
  Company Number: 2005BI006102

PATIENT
  Age: 23 Year
  Sex: Female

DRUGS (2)
  1. AMEVIVE [Suspect]
     Indication: PSORIASIS
     Dosage: 15MG; QW; IM
     Route: 030
     Dates: start: 20030619, end: 20030916
  2. AMEVIVE [Suspect]
     Indication: PSORIASIS
     Dosage: 15MG; QW; IM
     Route: 030
     Dates: start: 20040305, end: 20040622

REACTIONS (1)
  - PSORIASIS [None]
